FAERS Safety Report 7486801-4 (Version None)
Quarter: 2011Q2

REPORT INFORMATION
  Report Type: 
  Country: None (occurrence: None)
  Receive Date: 20110517
  Receipt Date: 20110511
  Transmission Date: 20111010
  Serious: Yes (Hospitalization, Other)
  Sender: FDA-Public Use
  Company Number: AU-AMGEN-AUSSP2011020823

PATIENT
  Age: 81 Year
  Sex: Male
  Weight: 62 kg

DRUGS (10)
  1. ARANESP [Suspect]
     Dosage: 50 A?G, QD
     Route: 058
     Dates: start: 20100720
  2. MICARDIS HCT [Concomitant]
     Dosage: 80 MG, QD
     Route: 048
     Dates: start: 20090602
  3. MINODIAB [Concomitant]
     Route: 048
  4. HYDROXYUREA [Concomitant]
     Dosage: 500 MG, UNK
     Route: 048
  5. ADALAT [Concomitant]
     Dosage: 30 MG, QD
     Route: 048
  6. LIPITOR [Concomitant]
     Dosage: 80 MG, QD
     Route: 048
  7. COVERSYL                           /00790701/ [Concomitant]
     Dosage: 10 MG, QD
     Route: 048
     Dates: start: 20090505
  8. ASPIRIN [Concomitant]
     Dosage: UNK UNK, 2 TIMES/WK
     Route: 048
  9. ARANESP [Suspect]
     Indication: RENAL FAILURE CHRONIC
     Dosage: 20 A?G, QWK
     Route: 058
     Dates: start: 20090602, end: 20090730
  10. CALCITRIOL [Concomitant]
     Dosage: .25 A?G, UNK
     Route: 048

REACTIONS (7)
  - CEREBRAL ISCHAEMIA [None]
  - VERTIGO [None]
  - CEREBRAL ATROPHY [None]
  - THERAPEUTIC RESPONSE DECREASED [None]
  - PROSTATE CANCER [None]
  - HAEMOGLOBIN DECREASED [None]
  - HYPERKALAEMIA [None]
